FAERS Safety Report 17629143 (Version 3)
Quarter: 2020Q2

REPORT INFORMATION
  Report Type: Report from Study
  Country: US (occurrence: US)
  Receive Date: 20200406
  Receipt Date: 20200421
  Transmission Date: 20200713
  Serious: Yes (Other)
  Sender: FDA-Public Use
  Company Number: US-SA-2020SA082743

PATIENT
  Age: 65 Year
  Sex: Male

DRUGS (6)
  1. ACETAMINOPHEN. [Concomitant]
     Active Substance: ACETAMINOPHEN
     Indication: PYREXIA
     Dosage: 975 MG, QID
     Route: 048
     Dates: start: 20200317
  2. MEROPENEM. [Concomitant]
     Active Substance: MEROPENEM
     Indication: PNEUMONIA
     Dosage: 1000 MG, TID
     Route: 048
     Dates: start: 20200316
  3. CHLORHEXIDINE [Concomitant]
     Active Substance: CHLORHEXIDINE
     Indication: INFECTION PROPHYLAXIS
     Dosage: 15 ML, BID
     Route: 048
     Dates: start: 20200319
  4. SARILUMAB [Suspect]
     Active Substance: SARILUMAB
     Indication: CORONAVIRUS INFECTION
     Dosage: UNK UNK, 1X; 200 MG OR 400 MG
     Route: 042
     Dates: start: 20200319, end: 20200319
  5. AZITHROMYCIN ANHYDROUS. [Concomitant]
     Active Substance: AZITHROMYCIN ANHYDROUS
     Indication: CORONAVIRUS INFECTION
     Dosage: 250 ML, QD
     Route: 042
     Dates: start: 20200320, end: 20200321
  6. CHLOROQUINE. [Concomitant]
     Active Substance: CHLOROQUINE
     Indication: CORONAVIRUS INFECTION
     Dosage: 500 MG, QD
     Route: 048
     Dates: start: 20200317

REACTIONS (3)
  - Transaminases increased [Recovered/Resolved]
  - Liver function test increased [Unknown]
  - Pneumatosis [Unknown]

NARRATIVE: CASE EVENT DATE: 20200322
